FAERS Safety Report 13209505 (Version 3)
Quarter: 2017Q1

REPORT INFORMATION
  Report Type: Spontaneous
  Country: US (occurrence: US)
  Receive Date: 20170209
  Receipt Date: 20170316
  Transmission Date: 20170428
  Serious: Yes (Other)
  Sender: FDA-Public Use
  Company Number: US-GLAXOSMITHKLINE-US2017015727

PATIENT
  Age: 50 Year
  Sex: Male

DRUGS (1)
  1. NICODERM CQ [Suspect]
     Active Substance: NICOTINE
     Indication: SMOKING CESSATION THERAPY
     Dosage: UNK
     Dates: start: 20170125

REACTIONS (6)
  - Application site reaction [Unknown]
  - Staphylococcal infection [Recovered/Resolved]
  - Product quality issue [Unknown]
  - Application site pain [Unknown]
  - Product selection error [Unknown]
  - Application site warmth [Unknown]
